FAERS Safety Report 14580665 (Version 1)
Quarter: 2018Q1

REPORT INFORMATION
  Report Type: Spontaneous
  Country: FR (occurrence: FR)
  Receive Date: 20180228
  Receipt Date: 20180228
  Transmission Date: 20180509
  Serious: Yes (Other)
  Sender: FDA-Public Use
  Company Number: FR-TEVA-2018-FR-860359

PATIENT
  Age: 18 Year
  Sex: Female

DRUGS (3)
  1. ALPRAZOLAM. [Suspect]
     Active Substance: ALPRAZOLAM
     Route: 040
     Dates: start: 20171205, end: 20171205
  2. SKENAN [Suspect]
     Active Substance: MORPHINE SULFATE
     Route: 040
     Dates: start: 20171205, end: 20171205
  3. MDMA [Suspect]
     Active Substance: MIDOMAFETAMINE
     Dosage: INCONNU
     Route: 065
     Dates: start: 20171205, end: 20171205

REACTIONS (2)
  - Coma [Recovered/Resolved]
  - Bradypnoea [Recovered/Resolved]

NARRATIVE: CASE EVENT DATE: 20171205
